FAERS Safety Report 8015491-7 (Version None)
Quarter: 2011Q4

REPORT INFORMATION
  Report Type: 
  Country: None (occurrence: None)
  Receive Date: 20111230
  Receipt Date: 20111216
  Transmission Date: 20120403
  Serious: Yes (Other)
  Sender: FDA-Public Use
  Company Number: IT-RANBAXY-2011R1-50912

PATIENT
  Sex: Male

DRUGS (1)
  1. CLARITHROMYCIN [Suspect]
     Indication: BRONCHITIS
     Dosage: 1 POSOLOGICAL UNIT, PRN
     Route: 048
     Dates: start: 20111126, end: 20111126

REACTIONS (2)
  - DYSKINESIA [None]
  - CRYING [None]
